FAERS Safety Report 16016214 (Version 1)
Quarter: 2019Q1

REPORT INFORMATION
  Report Type: Spontaneous
  Country: CA (occurrence: CA)
  Receive Date: 20190228
  Receipt Date: 20190228
  Transmission Date: 20190418
  Serious: Yes (Other)
  Sender: FDA-Public Use
  Company Number: CA-AUROBINDO-AUR-APL-2019-010829

PATIENT

DRUGS (1)
  1. CLINDAMYCIN. [Suspect]
     Active Substance: CLINDAMYCIN
     Indication: SKIN INFECTION
     Dosage: 300 MILLIGRAM, FOUR TIMES/DAY
     Route: 048

REACTIONS (3)
  - Oropharyngeal pain [Unknown]
  - Odynophagia [Unknown]
  - Dyspepsia [Unknown]
